FAERS Safety Report 7910195-0 (Version None)
Quarter: 2011Q4

REPORT INFORMATION
  Report Type: 
  Country: None (occurrence: None)
  Receive Date: 20111111
  Receipt Date: 20111108
  Transmission Date: 20120403
  Serious: Yes (Hospitalization, Disabling, Other)
  Sender: FDA-Public Use
  Company Number: US-ROCHE-473887

PATIENT
  Sex: Female
  Weight: 79.4 kg

DRUGS (15)
  1. LABETALOL HCL [Concomitant]
     Dosage: REPORTED AS LABETOLOL.
  2. ZOLOFT [Concomitant]
  3. ACCUTANE [Suspect]
     Indication: ACNE CYSTIC
     Route: 048
     Dates: start: 19810101, end: 19820101
  4. SEROQUEL [Concomitant]
     Indication: ANXIETY
  5. ATIVAN [Concomitant]
     Indication: ANXIETY
  6. PREDNISONE TAB [Concomitant]
  7. COLAZAL [Concomitant]
  8. VALIUM [Concomitant]
     Route: 048
  9. ACCUTANE [Suspect]
     Route: 048
  10. PROZAC [Concomitant]
  11. ANTIBIOTIKA [Concomitant]
  12. XANAX [Concomitant]
     Dosage: REPORTED AS XANAX.
  13. ACCUTANE [Suspect]
     Route: 048
     Dates: start: 19880101, end: 19890101
  14. CELEXA [Concomitant]
  15. BACTRIM [Concomitant]
     Route: 048

REACTIONS (31)
  - INFLAMMATORY BOWEL DISEASE [None]
  - ARTHRITIS [None]
  - BIPOLAR DISORDER [None]
  - NECK INJURY [None]
  - ABDOMINAL HERNIA [None]
  - OSTEOARTHRITIS [None]
  - ANXIETY [None]
  - FLIGHT OF IDEAS [None]
  - OBSESSIVE-COMPULSIVE DISORDER [None]
  - LUNG NEOPLASM [None]
  - PROCTITIS ULCERATIVE [None]
  - PHOBIA [None]
  - IRRITABLE BOWEL SYNDROME [None]
  - AORTIC ANEURYSM [None]
  - ASTHMA [None]
  - DEPERSONALISATION [None]
  - ANAEMIA [None]
  - CYSTITIS [None]
  - FATIGUE [None]
  - PANIC ATTACK [None]
  - POLYP [None]
  - INSOMNIA [None]
  - HYPERTENSION [None]
  - CROHN'S DISEASE [None]
  - SUICIDAL IDEATION [None]
  - INTESTINAL HAEMORRHAGE [None]
  - COLITIS ULCERATIVE [None]
  - CHRONIC FATIGUE SYNDROME [None]
  - DEPRESSION [None]
  - PALPITATIONS [None]
  - BACK PAIN [None]
